FAERS Safety Report 9370783 (Version 1)
Quarter: 2013Q2

REPORT INFORMATION
  Report Type: Spontaneous
  Country: DK (occurrence: DK)
  Receive Date: 20130626
  Receipt Date: 20130626
  Transmission Date: 20140414
  Serious: Yes (Other)
  Sender: FDA-Public Use
  Company Number: DK-ACTAVIS-2013-11610

PATIENT
  Age: 53 Year
  Sex: Male

DRUGS (1)
  1. GABAPENTIN (UNKNOWN) [Suspect]
     Indication: NEURALGIA
     Dosage: 300 MG, TID
     Route: 065

REACTIONS (1)
  - Tooth loss [Unknown]
